FAERS Safety Report 8762287 (Version 5)
Quarter: 2012Q4

REPORT INFORMATION
  Report Type: 
  Country: CA (occurrence: CA)
  Receive Date: 20120830
  Receipt Date: 20121108
  Transmission Date: 20130627
  Serious: Yes (Other)
  Sender: FDA-Public Use
  Company Number: CA-PFIZER INC-2012208663

PATIENT
  Sex: Female

DRUGS (3)
  1. LYRICA [Suspect]
     Indication: BACK PAIN
     Dosage: 75 mg, 2x/day
     Route: 064
     Dates: start: 20100919
  2. LYRICA [Suspect]
     Indication: FIBROMYALGIA
     Dosage: 75 mg, 1x/day at bedtime
     Route: 064
     Dates: end: 20101229
  3. SYNTHROID [Concomitant]
     Indication: HYPOTHYROIDISM
     Dosage: 125 ug, 1x/day
     Route: 064
     Dates: start: 20070315

REACTIONS (4)
  - Maternal exposure timing unspecified [Unknown]
  - Gastrooesophageal reflux disease [Recovered/Resolved]
  - Joint crepitation [Unknown]
  - Vomiting [Not Recovered/Not Resolved]
